FAERS Safety Report 6955369-0 (Version None)
Quarter: 2010Q3

REPORT INFORMATION
  Report Type: 
  Country: None (occurrence: None)
  Receive Date: 20100830
  Receipt Date: 20090707
  Transmission Date: 20110219
  Serious: No
  Sender: FDA-Public Use
  Company Number: US-MYLANLABS-2009S1012217

PATIENT
  Age: 44 Year
  Sex: Male

DRUGS (3)
  1. LISINOPRIL [Suspect]
  2. LANTUS [Suspect]
     Indication: DIABETES MELLITUS
     Route: 058
  3. ROSUVASTATIN [Suspect]

REACTIONS (3)
  - BLOOD GLUCOSE INCREASED [None]
  - HYPERTENSION [None]
  - POOR PERIPHERAL CIRCULATION [None]
